FAERS Safety Report 9492764 (Version 1)
Quarter: 2013Q3

REPORT INFORMATION
  Report Type: Spontaneous
  Country: US (occurrence: US)
  Receive Date: 20130830
  Receipt Date: 20130830
  Transmission Date: 20140515
  Serious: Yes (Hospitalization)
  Sender: FDA-Public Use
  Company Number: US-ASTRAZENECA-2013SE65386

PATIENT
  Age: 72 Year
  Sex: Female

DRUGS (16)
  1. SYMBICORT [Suspect]
     Indication: SEASONAL ALLERGY
     Route: 055
  2. ASTELIN [Suspect]
     Route: 065
     Dates: start: 2012
  3. ASTELIN [Suspect]
     Route: 045
     Dates: start: 2012
  4. REVLIMID [Suspect]
     Indication: PLASMA CELL MYELOMA
     Route: 048
     Dates: start: 201202
  5. REVLIMID [Suspect]
     Indication: PLASMA CELL MYELOMA
     Dosage: 25 MG, FOR 21 DAYS, EVERY 28 DAYS
     Route: 048
     Dates: start: 20120308
  6. MINT [Suspect]
     Route: 065
  7. ESTRACE [Concomitant]
  8. XOPENEX HFA [Concomitant]
     Route: 048
  9. ZOMETA [Concomitant]
     Dosage: 4 MG/100 ML
  10. PANTOPRAZOLE SODIUM [Concomitant]
     Route: 048
  11. DEXAMETHASONE [Concomitant]
     Route: 048
  12. LIPITOR [Concomitant]
     Route: 048
  13. METFORMIN HCL [Concomitant]
  14. KLOR CON [Concomitant]
  15. CLARITIN [Concomitant]
  16. ASPIRINE [Concomitant]
     Route: 048

REACTIONS (7)
  - Epistaxis [Recovered/Resolved]
  - Haemoptysis [Recovered/Resolved]
  - Dysgeusia [Unknown]
  - Decreased appetite [Unknown]
  - Weight decreased [Unknown]
  - Diarrhoea [Recovered/Resolved]
  - Off label use [Unknown]
